FAERS Safety Report 4473881-3 (Version None)
Quarter: 2004Q4

REPORT INFORMATION
  Report Type: 
  Country: None (occurrence: None)
  Receive Date: 20041008
  Receipt Date: 20041008
  Transmission Date: 20050328
  Serious: No
  Sender: FDA-Public Use
  Company Number: None

PATIENT

DRUGS (1)
  1. VISINE EYE DROPS [Suspect]

REACTIONS (5)
  - ABNORMAL SENSATION IN EYE [None]
  - APPLICATION SITE DISCOMFORT [None]
  - APPLICATION SITE REACTION [None]
  - EYE DISORDER [None]
  - VISION BLURRED [None]
